FAERS Safety Report 5138153-2 (Version None)
Quarter: 2006Q4

REPORT INFORMATION
  Report Type: 
  Country: None (occurrence: None)
  Receive Date: 20061030
  Receipt Date: 20061018
  Transmission Date: 20070319
  Serious: Yes (Other)
  Sender: FDA-Public Use
  Company Number: US-JNJFOC-20060906539

PATIENT
  Sex: Female
  Weight: 43.09 kg

DRUGS (2)
  1. ULTRAM [Suspect]
     Indication: PAIN
     Route: 048
  2. KLONOPIN [Concomitant]
     Indication: ANXIETY
     Route: 048

REACTIONS (3)
  - BLINDNESS [None]
  - DRUG DEPENDENCE [None]
  - DRUG WITHDRAWAL SYNDROME [None]
